FAERS Safety Report 16530858 (Version 1)
Quarter: 2019Q3

REPORT INFORMATION
  Report Type: Spontaneous
  Country: US (occurrence: US)
  Receive Date: 20190704
  Receipt Date: 20190704
  Transmission Date: 20191004
  Serious: Yes (Death, Other)
  Sender: FDA-Public Use
  Company Number: US-TEVA-2005B-01949

PATIENT
  Age: 43 Year
  Sex: Male

DRUGS (1)
  1. METOPROLOL. [Suspect]
     Active Substance: METOPROLOL
     Indication: ACUTE MYOCARDIAL INFARCTION
     Route: 042

REACTIONS (8)
  - Ventricular fibrillation [Unknown]
  - Ventricular tachycardia [Recovered/Resolved]
  - Blood pressure decreased [Unknown]
  - Cardiac arrest [Fatal]
  - Hypotension [Unknown]
  - Seizure [Unknown]
  - Apnoea [Unknown]
  - Bradycardia [Unknown]
